APPROVED DRUG PRODUCT: ESTRADIOL
Active Ingredient: ESTRADIOL
Strength: 0.1% (0.5GM/PACKET)
Dosage Form/Route: GEL;TRANSDERMAL
Application: A217610 | Product #002 | TE Code: AB
Applicant: NOVITIUM PHARMA LLC
Approved: Aug 24, 2023 | RLD: No | RS: No | Type: RX